FAERS Safety Report 17753239 (Version 1)
Quarter: 2020Q2

REPORT INFORMATION
  Report Type: Spontaneous
  Country: ES (occurrence: ES)
  Receive Date: 20200506
  Receipt Date: 20200506
  Transmission Date: 20200714
  Serious: Yes (Hospitalization)
  Sender: FDA-Public Use
  Company Number: NVSC2020ES121402

PATIENT
  Age: 70 Year
  Sex: Male

DRUGS (12)
  1. RAMIPRIL. [Concomitant]
     Active Substance: RAMIPRIL
     Indication: HYPERTENSION
     Dosage: 10 OT
     Route: 048
     Dates: start: 20181116
  2. HIDROALTESONA [Concomitant]
     Active Substance: HYDROCORTISONE
     Indication: HYPOPITUITARISM
     Dosage: 20 OT
     Route: 048
     Dates: start: 20081128
  3. ESBRIET [Suspect]
     Active Substance: PIRFENIDONE
     Indication: IDIOPATHIC PULMONARY FIBROSIS
     Dosage: 801 MG, Q8H
     Route: 048
     Dates: start: 20191003, end: 20200107
  4. ROSUVASTATINA [Suspect]
     Active Substance: ROSUVASTATIN
     Indication: PRODUCT USED FOR UNKNOWN INDICATION
     Dosage: 20 MG, QD
     Route: 048
     Dates: start: 20181205, end: 20200107
  5. PANTOPRAZOL [Concomitant]
     Active Substance: PANTOPRAZOLE SODIUM
     Indication: PRODUCT USED FOR UNKNOWN INDICATION
     Dosage: 20 OT
     Route: 048
     Dates: start: 20191008
  6. TESTEX [Concomitant]
     Active Substance: TESTOSTERONE
     Indication: HYPOPITUITARISM
     Dosage: 250 MG/ML (1 AMPOLLA DE 2 ML )
     Route: 065
     Dates: start: 20161014
  7. EUTIROX [Concomitant]
     Active Substance: LEVOTHYROXINE SODIUM
     Indication: HYPOPITUITARISM
     Dosage: 100 MG
     Route: 048
     Dates: start: 20200124
  8. EZETIMIBA [Suspect]
     Active Substance: EZETIMIBE
     Indication: DYSLIPIDAEMIA
     Dosage: 10 MG, QD
     Route: 048
     Dates: start: 20190620, end: 20200107
  9. EBASTEL [Concomitant]
     Active Substance: EBASTINE
     Indication: PRODUCT USED FOR UNKNOWN INDICATION
     Dosage: 10 MG
     Route: 048
     Dates: start: 20190530
  10. ADIRO [Concomitant]
     Active Substance: ASPIRIN
     Indication: MYOCARDIAL ISCHAEMIA
     Dosage: 100 OT
     Route: 048
     Dates: start: 20161014
  11. LERCANIDIPINO [Concomitant]
     Indication: HYPERTENSION
     Dosage: 10 OT
     Route: 065
     Dates: start: 20190426
  12. BISOPROLOL [Concomitant]
     Active Substance: BISOPROLOL
     Indication: PRODUCT USED FOR UNKNOWN INDICATION
     Dosage: 2.5 OT
     Route: 048
     Dates: start: 20180803

REACTIONS (3)
  - Hepatitis [Recovering/Resolving]
  - Hypocoagulable state [Recovered/Resolved]
  - Hyperbilirubinaemia [Recovering/Resolving]

NARRATIVE: CASE EVENT DATE: 20200107
